FAERS Safety Report 10065566 (Version 4)
Quarter: 2015Q3

REPORT INFORMATION
  Report Type: Spontaneous
  Country: US (occurrence: US)
  Receive Date: 20140408
  Receipt Date: 20150731
  Transmission Date: 20151125
  Serious: Yes (Death, Life-Threatening, Hospitalization, Other)
  Sender: FDA-Public Use
  Company Number: US-MERCK-1404USA004115

PATIENT
  Sex: Male
  Weight: 113.38 kg

DRUGS (1)
  1. JANUVIA [Suspect]
     Active Substance: SITAGLIPTIN PHOSPHATE
     Indication: TYPE 2 DIABETES MELLITUS
     Dosage: 100 MG, QD
     Route: 048
     Dates: start: 20110606, end: 20120720

REACTIONS (9)
  - Metastases to liver [Unknown]
  - Osteoarthritis [Unknown]
  - Pancreatitis [Unknown]
  - Hypertension [Unknown]
  - Chondropathy [Unknown]
  - Knee arthroplasty [Unknown]
  - Metastatic neoplasm [Unknown]
  - Pancreatic carcinoma metastatic [Fatal]
  - Asthma [Unknown]

NARRATIVE: CASE EVENT DATE: 201109
